FAERS Safety Report 8386569-3 (Version None)
Quarter: 2012Q2

REPORT INFORMATION
  Report Type: 
  Country: None (occurrence: None)
  Receive Date: 20120525
  Receipt Date: 20110826
  Transmission Date: 20120825
  Serious: No
  Sender: FDA-Public Use
  Company Number: US-GLAXOSMITHKLINE-A0942534A

PATIENT
  Age: 66 Year
  Sex: Male

DRUGS (2)
  1. CADUET [Concomitant]
  2. VERAMYST [Suspect]
     Indication: RHINITIS ALLERGIC
     Route: 045
     Dates: start: 20110801

REACTIONS (2)
  - DRUG INEFFECTIVE [None]
  - EAR DISCOMFORT [None]
